FAERS Safety Report 7182936-4 (Version None)
Quarter: 2010Q4

REPORT INFORMATION
  Report Type: 
  Country: None (occurrence: None)
  Receive Date: 20101210
  Receipt Date: 20101130
  Transmission Date: 20110411
  Serious: Yes (Other)
  Sender: FDA-Public Use
  Company Number: 769692

PATIENT
  Age: 13 Year
  Sex: Female

DRUGS (5)
  1. CYTARABINE [Suspect]
     Indication: B PRECURSOR TYPE ACUTE LEUKAEMIA
     Dosage: INTRATHECAL
     Route: 037
  2. METHOTREXATE [Suspect]
     Indication: B PRECURSOR TYPE ACUTE LEUKAEMIA
     Dosage: INTRATHECAL
     Route: 037
  3. HYDROCORTISONE [Suspect]
     Indication: B PRECURSOR TYPE ACUTE LEUKAEMIA
     Dosage: INTRATHECAL
     Route: 037
  4. CYCLOPHOSPHAMIDE [Suspect]
     Indication: B PRECURSOR TYPE ACUTE LEUKAEMIA
  5. THIOGUANINE [Suspect]
     Indication: B PRECURSOR TYPE ACUTE LEUKAEMIA

REACTIONS (23)
  - APHASIA [None]
  - ASTHENIA [None]
  - BULBAR PALSY [None]
  - CEREBELLAR ATAXIA [None]
  - EXERCISE TOLERANCE DECREASED [None]
  - FACIAL PARESIS [None]
  - GAIT DISTURBANCE [None]
  - HAEMOGLOBIN DECREASED [None]
  - HEADACHE [None]
  - HEMIPARESIS [None]
  - LACK OF SPONTANEOUS SPEECH [None]
  - LEUKOENCEPHALOPATHY [None]
  - MALAISE [None]
  - MUSCLE ATROPHY [None]
  - NERVOUS SYSTEM DISORDER [None]
  - NUCLEAR MAGNETIC RESONANCE IMAGING ABNORMAL [None]
  - NUCLEAR MAGNETIC RESONANCE IMAGING BRAIN ABNORMAL [None]
  - PALLOR [None]
  - PLATELET COUNT DECREASED [None]
  - QUADRIPLEGIA [None]
  - TREMOR [None]
  - URINARY RETENTION [None]
  - VIITH NERVE PARALYSIS [None]
